FAERS Safety Report 7295473-3 (Version None)
Quarter: 2011Q1

REPORT INFORMATION
  Report Type: 
  Country: None (occurrence: None)
  Receive Date: 20110216
  Receipt Date: 20110118
  Transmission Date: 20110831
  Serious: No
  Sender: FDA-Public Use
  Company Number: US-ABBOTT-11P-163-0698526-00

PATIENT
  Weight: 81.72 kg

DRUGS (2)
  1. SIMCOR [Suspect]
  2. SIMCOR [Suspect]
     Indication: HYPERLIPIDAEMIA
     Dosage: 500/20MG

REACTIONS (5)
  - MYALGIA [None]
  - GAIT DISTURBANCE [None]
  - PAIN IN EXTREMITY [None]
  - OEDEMA PERIPHERAL [None]
  - BACK PAIN [None]
